FAERS Safety Report 19647792 (Version 1)
Quarter: 2021Q3

REPORT INFORMATION
  Report Type: Spontaneous
  Country: CN (occurrence: CN)
  Receive Date: 20210802
  Receipt Date: 20210802
  Transmission Date: 20211014
  Serious: Yes (Other)
  Sender: FDA-Public Use
  Company Number: CN-ROCHE-2878707

PATIENT
  Age: 59 Year
  Sex: Female

DRUGS (6)
  1. AVASTIN [Suspect]
     Active Substance: BEVACIZUMAB
     Indication: METASTASES TO LIVER
     Dosage: ON 17/AUG/2020, 10/SEP/2020, 15/OCT/2020, 26/OCT/2020
     Route: 065
     Dates: start: 20200817
  2. OXALIPLATIN. [Concomitant]
     Active Substance: OXALIPLATIN
     Indication: METASTASES TO LIVER
     Dosage: ON 17 AUG 2020, 10 SEP 2020, 15 OCT 2020, 26 OCT 2020
     Dates: start: 20200817
  3. OXALIPLATIN. [Concomitant]
     Active Substance: OXALIPLATIN
     Indication: COLON CANCER
     Dosage: ON 22 APR 2020, 13 MAY 2020, 06 JUN 2020
     Dates: start: 20200422
  4. XELODA [Suspect]
     Active Substance: CAPECITABINE
     Indication: METASTASES TO LIVER
     Dosage: ON 17/AUG/2020, 10/SEP/2020, 15/OCT/2020, 26/OCT/2020
     Route: 048
     Dates: start: 20200817
  5. XELODA [Suspect]
     Active Substance: CAPECITABINE
     Indication: COLON CANCER
     Dosage: ON 22/APR/2020, 13/MAY/2020, 06/JUN/2020
     Route: 048
     Dates: start: 20200422
  6. AVASTIN [Suspect]
     Active Substance: BEVACIZUMAB
     Indication: COLON CANCER
     Dosage: ON 22/APR/2020, 13/MAY/2020, 06/JUN/2020
     Route: 065
     Dates: start: 20200422

REACTIONS (3)
  - Asthenia [Unknown]
  - Decreased appetite [Unknown]
  - Myelosuppression [Unknown]
